FAERS Safety Report 6546340-1 (Version None)
Quarter: 2010Q1

REPORT INFORMATION
  Report Type: 
  Country: None (occurrence: None)
  Receive Date: 20100119
  Receipt Date: 20100104
  Transmission Date: 20100710
  Serious: Yes (Other)
  Sender: FDA-Public Use
  Company Number: 2009AC000430

PATIENT
  Age: 75 Year
  Sex: Female

DRUGS (8)
  1. DIGOXIN [Suspect]
     Dosage: PO
     Route: 048
     Dates: start: 20010101
  2. PROPRANOLOL [Concomitant]
  3. HYDROCHLOROTHIAZIDE [Concomitant]
  4. WARFARIN SODIUM [Concomitant]
  5. BENAZEPRIL HYDROCHLORIDE [Concomitant]
  6. SIMVASTATIN [Concomitant]
  7. CALCUIM [Concomitant]
  8. VITAMIN D [Concomitant]

REACTIONS (6)
  - ARRHYTHMIA [None]
  - ATRIAL FIBRILLATION [None]
  - ECONOMIC PROBLEM [None]
  - ESSENTIAL HYPERTENSION [None]
  - INJURY [None]
  - SURGERY [None]
